FAERS Safety Report 22050695 (Version 1)
Quarter: 2023Q1

REPORT INFORMATION
  Report Type: Spontaneous
  Country: US (occurrence: None)
  Receive Date: 20230228
  Receipt Date: 20230228
  Transmission Date: 20230418
  Serious: Yes (Life-Threatening)
  Sender: FDA-Public Use
  Company Number: None

PATIENT
  Age: 25 Year
  Sex: Female

DRUGS (1)
  1. AMMONIA INHALANTS [Suspect]
     Active Substance: AMMONIA
     Indication: Product used for unknown indication

REACTIONS (4)
  - Headache [None]
  - Gastric disorder [None]
  - Urinary tract disorder [None]
  - Seizure [None]

NARRATIVE: CASE EVENT DATE: 20230117
